FAERS Safety Report 10227477 (Version 1)
Quarter: 2014Q2

REPORT INFORMATION
  Report Type: Spontaneous
  Country: US (occurrence: US)
  Receive Date: 20140610
  Receipt Date: 20140610
  Transmission Date: 20141212
  Serious: No
  Sender: FDA-Public Use
  Company Number: US-VIIV HEALTHCARE LIMITED-A1061187A

PATIENT
  Age: 56 Year
  Sex: Male
  Weight: 75.9 kg

DRUGS (2)
  1. TIVICAY [Suspect]
     Indication: HIV INFECTION
     Dosage: 20MG PER DAY
     Route: 048
  2. OTHER MEDICATIONS [Concomitant]
     Indication: HIV INFECTION

REACTIONS (1)
  - Liver function test abnormal [Not Recovered/Not Resolved]
